FAERS Safety Report 7588411-7 (Version None)
Quarter: 2011Q2

REPORT INFORMATION
  Report Type: 
  Country: None (occurrence: None)
  Receive Date: 20110603
  Receipt Date: 20110412
  Transmission Date: 20111010
  Serious: No
  Sender: FDA-Public Use
  Company Number: 2011SP016529

PATIENT
  Age: 46 Year
  Sex: Female

DRUGS (3)
  1. KLONOPIN [Concomitant]
  2. SAPHRIS [Suspect]
     Indication: BIPOLAR DISORDER
     Dosage: 5 MG; HS; BUCC
     Route: 002
     Dates: start: 20110301
  3. LEVOTHYROXINE [Concomitant]

REACTIONS (8)
  - ORAL PAIN [None]
  - ARTHRALGIA [None]
  - CLUTTERING [None]
  - UNDERDOSE [None]
  - VENOUS INSUFFICIENCY [None]
  - VISION BLURRED [None]
  - CHILLS [None]
  - HYPOAESTHESIA ORAL [None]
